FAERS Safety Report 8622984-8 (Version None)
Quarter: 2012Q3

REPORT INFORMATION
  Report Type: 
  Country: None (occurrence: None)
  Receive Date: 20120827
  Receipt Date: 20120824
  Transmission Date: 20120928
  Serious: Yes (Other)
  Sender: FDA-Public Use
  Company Number: PHHY2012CA072881

PATIENT
  Sex: Female

DRUGS (2)
  1. CLOZARIL [Suspect]
     Dosage: 125 TO 150 MG FOR 2 WEEKS
     Route: 048
     Dates: start: 20120301
  2. LITHIUM CARBONATE [Concomitant]
     Dosage: UNK UKN, UNK

REACTIONS (1)
  - RENAL FAILURE [None]
